FAERS Safety Report 20015360 (Version 1)
Quarter: 2021Q4

REPORT INFORMATION
  Report Type: Spontaneous
  Country: US (occurrence: None)
  Receive Date: 20211029
  Receipt Date: 20211029
  Transmission Date: 20220303
  Serious: Yes (Hospitalization)
  Sender: FDA-Public Use
  Company Number: None

PATIENT
  Age: 76 Year
  Sex: Male

DRUGS (1)
  1. METOPROLOL SUCCINATE [Suspect]
     Active Substance: METOPROLOL SUCCINATE
     Indication: Atrial fibrillation
     Dosage: FREQUENCY : TWICE A DAY;?
     Route: 048
     Dates: start: 20210315

REACTIONS (5)
  - Atrial fibrillation [None]
  - Product distribution issue [None]
  - Therapy interrupted [None]
  - Device programming error [None]
  - Withdrawal syndrome [None]

NARRATIVE: CASE EVENT DATE: 20210906
